APPROVED DRUG PRODUCT: FLUOXETINE HYDROCHLORIDE
Active Ingredient: FLUOXETINE HYDROCHLORIDE
Strength: EQ 10MG BASE
Dosage Form/Route: TABLET;ORAL
Application: A075755 | Product #001
Applicant: RISING PHARMA HOLDING INC
Approved: Aug 2, 2001 | RLD: No | RS: No | Type: DISCN